FAERS Safety Report 9770375 (Version 1)
Quarter: 2013Q4

REPORT INFORMATION
  Report Type: Spontaneous
  Country: US (occurrence: US)
  Receive Date: 20131218
  Receipt Date: 20131218
  Transmission Date: 20140711
  Serious: Yes (Other)
  Sender: FDA-Public Use
  Company Number: US-NOVEN-13US008372

PATIENT
  Age: 55 Year
  Sex: Female

DRUGS (2)
  1. MINIVELLE [Suspect]
     Indication: HOT FLUSH
     Dosage: 0.075 MG/DAY, UNK
     Route: 062
     Dates: start: 201310
  2. MINIVELLE [Suspect]
     Dosage: 0.075 MG/DAY, UNK
     Route: 062
     Dates: start: 201310

REACTIONS (3)
  - Rotator cuff syndrome [Recovering/Resolving]
  - Incorrect drug administration duration [Not Recovered/Not Resolved]
  - Product quality issue [Not Recovered/Not Resolved]
